FAERS Safety Report 25551401 (Version 4)
Quarter: 2025Q4

REPORT INFORMATION
  Report Type: Report from Study
  Country: US (occurrence: US)
  Receive Date: 20250714
  Receipt Date: 20251106
  Transmission Date: 20260117
  Serious: Yes (Other)
  Sender: ABBVIE
  Company Number: US-ABBVIE-6365618

PATIENT
  Age: 76 Year
  Sex: Female
  Weight: 38 kg

DRUGS (2)
  1. VYALEV [Suspect]
     Active Substance: FOSCARBIDOPA\FOSLEVODOPA
     Indication: Parkinson^s disease
     Route: 058
     Dates: start: 20250627
  2. VYALEV [Suspect]
     Active Substance: FOSCARBIDOPA\FOSLEVODOPA
     Dosage: LAST ADMIN DATE: JUNE 2025
     Route: 058
     Dates: start: 20250625

REACTIONS (11)
  - Loss of consciousness [Recovering/Resolving]
  - Speech disorder [Not Recovered/Not Resolved]
  - Hallucination [Recovering/Resolving]
  - Musculoskeletal stiffness [Not Recovered/Not Resolved]
  - Disorientation [Not Recovered/Not Resolved]
  - Fatigue [Recovering/Resolving]
  - Device use error [Unknown]
  - Confusional state [Unknown]
  - Somnolence [Unknown]
  - Feeling abnormal [Unknown]
  - Asthenia [Unknown]

NARRATIVE: CASE EVENT DATE: 20250101
